FAERS Safety Report 5787157-5 (Version None)
Quarter: 2008Q2

REPORT INFORMATION
  Report Type: 
  Country: None (occurrence: None)
  Receive Date: 20080625
  Receipt Date: 20080324
  Transmission Date: 20081010
  Serious: No
  Sender: FDA-Public Use
  Company Number: US-BAUSCH-2008BL001286

PATIENT
  Age: 42 Year
  Sex: Female

DRUGS (5)
  1. ALAWAY [Suspect]
     Indication: EYE PRURITUS
     Route: 047
     Dates: start: 20080319, end: 20080319
  2. CLARINEX /USA/ [Concomitant]
     Indication: HYPERSENSITIVITY
     Route: 048
  3. SINGULAIR [Concomitant]
     Indication: ASTHMA
     Route: 048
  4. ALLEGRA [Concomitant]
     Indication: HYPERSENSITIVITY
     Route: 048
  5. PATANOL [Concomitant]
     Indication: EYE ALLERGY
     Route: 047

REACTIONS (5)
  - CONDITION AGGRAVATED [None]
  - EYE IRRITATION [None]
  - EYE PRURITUS [None]
  - HYPOAESTHESIA [None]
  - HYPOAESTHESIA ORAL [None]
